FAERS Safety Report 8190993-1 (Version None)
Quarter: 2012Q1

REPORT INFORMATION
  Report Type: 
  Country: None (occurrence: None)
  Receive Date: 20120307
  Receipt Date: 20120301
  Transmission Date: 20120608
  Serious: Yes (Other)
  Sender: FDA-Public Use
  Company Number: US-ABBOTT-12P-163-0910136-00

PATIENT

DRUGS (2)
  1. HUMIRA [Suspect]
     Indication: PRODUCT USED FOR UNKNOWN INDICATION
     Dosage: 1 IN 2 WEEKS, FOR TWO YEARS
     Route: 058
  2. HUMIRA [Suspect]
     Dosage: 1 IN 1 WEEK, FOR TWO YEARS
     Route: 058

REACTIONS (2)
  - CONDITION AGGRAVATED [None]
  - PAIN [None]
